FAERS Safety Report 5104671-6 (Version None)
Quarter: 2006Q3

REPORT INFORMATION
  Report Type: 
  Country: None (occurrence: None)
  Receive Date: 20060911
  Receipt Date: 20060825
  Transmission Date: 20061208
  Serious: Yes (Hospitalization)
  Sender: FDA-Public Use
  Company Number: US200608006264

PATIENT
  Sex: 0

DRUGS (1)
  1. STRATTERA [Suspect]
     Dosage: 40 MG
     Dates: start: 20060821, end: 20060821

REACTIONS (2)
  - OVERDOSE [None]
  - SYMPATHOMIMETIC EFFECT [None]
